FAERS Safety Report 20183429 (Version 1)
Quarter: 2021Q4

REPORT INFORMATION
  Report Type: Spontaneous
  Country: US (occurrence: US)
  Receive Date: 20211214
  Receipt Date: 20211214
  Transmission Date: 20220303
  Serious: No
  Sender: FDA-Public Use
  Company Number: US-ABBVIE-21K-163-3751881-00

PATIENT
  Age: 74 Year
  Sex: Female
  Weight: 25.329 kg

DRUGS (3)
  1. IMBRUVICA [Suspect]
     Active Substance: IBRUTINIB
     Indication: Chronic lymphocytic leukaemia
     Route: 048
  2. PFIZER-BIONTECH COVID-19 VACCINE [Suspect]
     Active Substance: TOZINAMERAN
     Indication: COVID-19 immunisation
     Dosage: ARM , LEFT UPPER AT APPROXIMATELY  11:45AM
     Route: 030
     Dates: start: 20210109
  3. CHILDRENS BENADRYL ALLERGY [Concomitant]
     Active Substance: DIPHENHYDRAMINE HYDROCHLORIDE
     Indication: Product used for unknown indication

REACTIONS (19)
  - Vaccination complication [Recovered/Resolved]
  - Chills [Unknown]
  - Diarrhoea [Not Recovered/Not Resolved]
  - Gait disturbance [Recovered/Resolved]
  - Fatigue [Not Recovered/Not Resolved]
  - Lymphadenopathy [Not Recovered/Not Resolved]
  - Flushing [Not Recovered/Not Resolved]
  - Paraesthesia [Not Recovered/Not Resolved]
  - Dysgeusia [Not Recovered/Not Resolved]
  - Feeling hot [Unknown]
  - White blood cell count abnormal [Recovering/Resolving]
  - Skin burning sensation [Unknown]
  - Feeling abnormal [Unknown]
  - Nervousness [Unknown]
  - Blood pressure increased [Unknown]
  - Body temperature increased [Unknown]
  - Drug hypersensitivity [Unknown]
  - Burning sensation [Unknown]
  - Tremor [Unknown]

NARRATIVE: CASE EVENT DATE: 20210101
